FAERS Safety Report 8681285 (Version 2)
Quarter: 2013Q1

REPORT INFORMATION
  Report Type: Spontaneous
  Country: US (occurrence: None)
  Receive Date: 20120706
  Receipt Date: 20130219
  Transmission Date: 20140127
  Serious: Yes (Other)
  Sender: FDA-Public Use
  Company Number: DSU-2012-05230

PATIENT
  Age: 66 Year
  Sex: Female

DRUGS (3)
  1. OLMESARTAN MEDOXOMIL [Suspect]
     Indication: HYPERTENSION
     Route: 048
     Dates: start: 200703, end: 20110519
  2. ACIPHEX (RABEPRAZOLE SODIUM) (RABEPRAZOLE SODIUM) [Concomitant]
  3. SPIRONOLACTONE (SPIRONOLACTONE) (SPIRONOLACTONE) [Concomitant]

REACTIONS (5)
  - Colitis [None]
  - Malabsorption [None]
  - Weight decreased [None]
  - Gastritis [None]
  - Myocarditis [None]
